FAERS Safety Report 16213969 (Version 1)
Quarter: 2019Q2

REPORT INFORMATION
  Report Type: Spontaneous
  Country: NL (occurrence: FR)
  Receive Date: 20190418
  Receipt Date: 20190418
  Transmission Date: 20190711
  Serious: Yes (Other)
  Sender: FDA-Public Use
  Company Number: FR-FRESENIUS KABI-FK201904379

PATIENT
  Age: 68 Year
  Sex: Female

DRUGS (4)
  1. DEXCHLORPHENIRAMINE MALEATE. [Suspect]
     Active Substance: DEXCHLORPHENIRAMINE MALEATE
     Indication: ALLERGY PROPHYLAXIS
     Route: 042
     Dates: start: 20190218, end: 20190218
  2. RANITIDINE HYDROCHLORIDE. [Suspect]
     Active Substance: RANITIDINE HYDROCHLORIDE
     Indication: ALLERGY PROPHYLAXIS
     Route: 042
     Dates: start: 20190218, end: 20190218
  3. PACLITAXEL (NOT SPECIFIED) [Suspect]
     Active Substance: PACLITAXEL
     Indication: VAGINAL CANCER
     Route: 042
     Dates: start: 20190218, end: 20190218
  4. DEXAMETHASONE. [Suspect]
     Active Substance: DEXAMETHASONE
     Indication: ALLERGY PROPHYLAXIS
     Route: 042
     Dates: start: 20190218, end: 20190218

REACTIONS (7)
  - Hypertension [Recovered/Resolved]
  - Dyspnoea [Recovered/Resolved]
  - Malaise [Recovered/Resolved]
  - Bronchospasm [Recovered/Resolved]
  - Tachycardia [Recovered/Resolved]
  - Hypersensitivity [Recovered/Resolved]
  - Erythema [Recovered/Resolved]

NARRATIVE: CASE EVENT DATE: 20190218
